FAERS Safety Report 5717446-1 (Version None)
Quarter: 2008Q2

REPORT INFORMATION
  Report Type: 
  Country: None (occurrence: None)
  Receive Date: 20080425
  Receipt Date: 20080213
  Transmission Date: 20081010
  Serious: No
  Sender: FDA-Public Use
  Company Number: US-BAYER-200814462NA

PATIENT
  Age: 23 Year
  Sex: Female
  Weight: 87 kg

DRUGS (2)
  1. MIRENA [Suspect]
     Indication: CONTRACEPTION
     Route: 015
     Dates: start: 20061201, end: 20080213
  2. KEFLEX [Concomitant]
     Indication: PROPHYLAXIS
     Route: 048

REACTIONS (1)
  - IUCD COMPLICATION [None]
